FAERS Safety Report 8558022-5 (Version None)
Quarter: 2012Q3

REPORT INFORMATION
  Report Type: 
  Country: None (occurrence: None)
  Receive Date: 20120801
  Receipt Date: 20120719
  Transmission Date: 20120928
  Serious: No
  Sender: FDA-Public Use
  Company Number: US-ASTRAZENECA-2012SE50747

PATIENT
  Age: 73 Year
  Sex: Male
  Weight: 69.9 kg

DRUGS (6)
  1. PULMICORT FLEXHALER [Suspect]
     Indication: ASTHMA
     Dosage: ONE INHAILATION DAILY IN MORNING
     Route: 055
     Dates: start: 20110101
  2. COUMADIN [Concomitant]
     Indication: ANTICOAGULANT THERAPY
  3. NASONEX [Concomitant]
     Indication: NASAL POLYPS
  4. COREG [Concomitant]
  5. ALTACE [Concomitant]
     Indication: CARDIAC DISORDER
  6. PATANOL [Concomitant]
     Indication: EYE IRRITATION

REACTIONS (2)
  - OFF LABEL USE [None]
  - ERECTILE DYSFUNCTION [None]
